FAERS Safety Report 16067540 (Version 1)
Quarter: 2019Q1

REPORT INFORMATION
  Report Type: Report from Study
  Country: None (occurrence: CA)
  Receive Date: 20190313
  Receipt Date: 20190313
  Transmission Date: 20190418
  Serious: Yes (Death)
  Sender: FDA-Public Use
  Company Number: CA-ABBVIE-19K-028-2703011-00

PATIENT
  Age: 72 Year
  Sex: Male

DRUGS (1)
  1. VENETOCLAX. [Suspect]
     Active Substance: VENETOCLAX
     Indication: CHRONIC LYMPHOCYTIC LEUKAEMIA
     Route: 048
     Dates: start: 20190116

REACTIONS (1)
  - Death [Fatal]

NARRATIVE: CASE EVENT DATE: 201902
